FAERS Safety Report 18659923 (Version 1)
Quarter: 2020Q4

REPORT INFORMATION
  Report Type: Other
  Country: RS (occurrence: RS)
  Receive Date: 20201223
  Receipt Date: 20201223
  Transmission Date: 20210114
  Serious: Yes (Life-Threatening)
  Sender: FDA-Public Use
  Company Number: RS-B.BRAUN MEDICAL INC.-2103436

PATIENT
  Age: 55 Year
  Sex: Female

DRUGS (1)
  1. METRONIDAZOLE INJECTION USP (5 MG/ML) IN PAB? PLASTIC CONTAINER (NDA 0 [Suspect]
     Active Substance: METRONIDAZOLE
     Route: 048

REACTIONS (9)
  - Nausea [None]
  - Hypotension [None]
  - Anaphylactic reaction [None]
  - Vomiting [None]
  - Loss of consciousness [None]
  - Abdominal discomfort [None]
  - Somnolence [None]
  - Dyspnoea [None]
  - Hypoxia [None]
